FAERS Safety Report 9882656 (Version 2)
Quarter: 2014Q1

REPORT INFORMATION
  Report Type: Spontaneous
  Country: US (occurrence: US)
  Receive Date: 20140207
  Receipt Date: 20140305
  Transmission Date: 20141002
  Serious: Yes (Hospitalization, Other)
  Sender: FDA-Public Use
  Company Number: CHPA2014US002251

PATIENT
  Age: 77 Year
  Sex: Female

DRUGS (3)
  1. GAS-X EXTSTR CHEWABLE TABS CHERRY CREME [Suspect]
     Indication: GASTROINTESTINAL MOTILITY DISORDER
     Dosage: 15 DF, UNK
     Route: 048
  2. GAS-X EXTSTR CHEWABLE TABS CHERRY CREME [Suspect]
     Indication: OFF LABEL USE
     Dosage: 13 DF, UNK
  3. LABETALOL [Concomitant]
     Indication: HYPERTENSION
     Dosage: 1 UNK, Q12H

REACTIONS (10)
  - Eating disorder [Unknown]
  - Memory impairment [Unknown]
  - Upper limb fracture [Unknown]
  - Musculoskeletal pain [Recovered/Resolved]
  - Arthralgia [Not Recovered/Not Resolved]
  - Pain in extremity [Not Recovered/Not Resolved]
  - Abdominal discomfort [Recovered/Resolved]
  - Defaecation urgency [Recovered/Resolved]
  - Faecal incontinence [Recovered/Resolved]
  - Therapeutic response unexpected [Unknown]
